FAERS Safety Report 18227955 (Version 1)
Quarter: 2020Q3

REPORT INFORMATION
  Report Type: Spontaneous
  Country: PL (occurrence: PL)
  Receive Date: 20200903
  Receipt Date: 20200903
  Transmission Date: 20201103
  Serious: Yes (Other)
  Sender: FDA-Public Use
  Company Number: PL-009507513-2008POL013998

PATIENT
  Age: 68 Year
  Sex: Male
  Weight: 98 kg

DRUGS (8)
  1. EZETIMIBE. [Suspect]
     Active Substance: EZETIMIBE
     Dosage: DOSE: 1/2 OF A TABLET
  2. VIVACOR (BISOPROLOL FUMARATE) [Concomitant]
     Dosage: UNK
  3. BRILIQUE [Concomitant]
     Active Substance: TICAGRELOR
     Dosage: UNK
  4. IPP (OMEPRAZOLE) [Concomitant]
     Dosage: UNK
  5. TRIPLIXAM [Concomitant]
     Active Substance: AMLODIPINE BESYLATE\INDAPAMIDE\PERINDOPRIL ARGININE
     Dosage: UNK
  6. EZETIMIBE. [Suspect]
     Active Substance: EZETIMIBE
     Dosage: EZEN, DOSE: 1 TABLET
  7. TULIP (ATORVASTATIN CALCIUM) [Concomitant]
     Active Substance: ATORVASTATIN CALCIUM
     Dosage: UNK
  8. ACARD [Concomitant]
     Active Substance: ASPIRIN
     Indication: MYOCARDIAL INFARCTION
     Dosage: THERAPY ONGOING
     Dates: start: 20190908

REACTIONS (5)
  - Anxiety [Recovered/Resolved]
  - Pollakiuria [Recovered/Resolved]
  - Chest pain [Recovered/Resolved]
  - Angina pectoris [Recovered/Resolved]
  - Pain [Recovered/Resolved]
